FAERS Safety Report 7572834-6 (Version None)
Quarter: 2011Q2

REPORT INFORMATION
  Report Type: 
  Country: None (occurrence: None)
  Receive Date: 20110525
  Receipt Date: 20110225
  Transmission Date: 20111010
  Serious: Yes (Other)
  Sender: FDA-Public Use
  Company Number: 324042

PATIENT
  Age: 45 Year
  Sex: Female
  Weight: 95.2 kg

DRUGS (2)
  1. VICTOZA [Suspect]
     Indication: TYPE 2 DIABETES MELLITUS
     Dosage: SUBCUTANEOUS, 1.8 MG, QD
     Dates: start: 20100922, end: 20110222
  2. VICTOZA [Suspect]
     Indication: TYPE 2 DIABETES MELLITUS
     Dosage: SUBCUTANEOUS, 1.8 MG, QD
     Dates: start: 20100401

REACTIONS (4)
  - WEIGHT DECREASED [None]
  - DIARRHOEA [None]
  - PANCREATITIS ACUTE [None]
  - ERUCTATION [None]
